FAERS Safety Report 21017804 (Version 3)
Quarter: 2022Q2

REPORT INFORMATION
  Report Type: Report from Study
  Country: NL (occurrence: NL)
  Receive Date: 20220628
  Receipt Date: 20220629
  Transmission Date: 20220721
  Serious: Yes (Hospitalization)
  Sender: FDA-Public Use
  Company Number: NL-VER-202200077

PATIENT
  Age: 76 Year
  Sex: Male

DRUGS (1)
  1. TRIPTORELIN PAMOATE [Suspect]
     Active Substance: TRIPTORELIN PAMOATE
     Indication: Prostate cancer metastatic
     Route: 030
     Dates: start: 20201028

REACTIONS (2)
  - Platelet count decreased [Unknown]
  - Terminal state [Unknown]

NARRATIVE: CASE EVENT DATE: 20220601
